FAERS Safety Report 8217404-1 (Version None)
Quarter: 2012Q1

REPORT INFORMATION
  Report Type: 
  Country: None (occurrence: None)
  Receive Date: 20120313
  Receipt Date: 20120228
  Transmission Date: 20120608
  Serious: Yes (Congenital Anomaly)
  Sender: FDA-Public Use
  Company Number: PRIM20120003

PATIENT

DRUGS (3)
  1. PHENACEMIDE (PHENACEMIDE) [Suspect]
     Indication: MATERNAL EXPOSURE DURING PREGNANCY
     Dosage: UNK, TRANSPLACENTAL
     Route: 064
  2. PHENOBARBITAL TAB [Suspect]
     Indication: MATERNAL EXPOSURE DURING PREGNANCY
     Dosage: UNK, TRANSPLACENTAL
     Route: 064
  3. PRIMIDONE [Suspect]
     Indication: MATERNAL EXPOSURE DURING PREGNANCY
     Dosage: UNK, TRANSPLACENTAL
     Route: 064

REACTIONS (7)
  - MICROTIA [None]
  - KIDNEY ENLARGEMENT [None]
  - RECTAL STENOSIS [None]
  - TALIPES [None]
  - MATERNAL DRUGS AFFECTING FOETUS [None]
  - PULMONARY ARTERY STENOSIS CONGENITAL [None]
  - CONGENITAL ABSENCE OF VERTEBRA [None]
